FAERS Safety Report 5618572-8 (Version None)
Quarter: 2008Q1

REPORT INFORMATION
  Report Type: 
  Country: None (occurrence: None)
  Receive Date: 20080207
  Receipt Date: 20080204
  Transmission Date: 20080703
  Serious: No
  Sender: FDA-Public Use
  Company Number: US-MERCK-0801USA05369

PATIENT
  Age: 61 Year
  Sex: Male

DRUGS (2)
  1. COZAAR [Suspect]
     Indication: HYPERTENSION
     Route: 048
     Dates: start: 20070701
  2. MEVACOR [Concomitant]
     Route: 065

REACTIONS (1)
  - PHARMACEUTICAL PRODUCT COMPLAINT [None]
